FAERS Safety Report 23712598 (Version 3)
Quarter: 2024Q2

REPORT INFORMATION
  Report Type: Report from Study
  Country: CA (occurrence: CA)
  Receive Date: 20240405
  Receipt Date: 20240429
  Transmission Date: 20240716
  Serious: Yes (Other)
  Sender: FDA-Public Use
  Company Number: US-TEVA-VS-3176598

PATIENT
  Age: 21 Year
  Sex: Female

DRUGS (4)
  1. AJOVY [Suspect]
     Active Substance: FREMANEZUMAB-VFRM
     Indication: Migraine prophylaxis
     Route: 058
     Dates: start: 20230426, end: 2023
  2. TOPAMAX [Concomitant]
     Active Substance: TOPIRAMATE
  3. NADOLOL [Concomitant]
     Active Substance: NADOLOL
  4. AVENTYL [Concomitant]
     Active Substance: NORTRIPTYLINE HYDROCHLORIDE

REACTIONS (1)
  - Injection site cellulitis [Unknown]

NARRATIVE: CASE EVENT DATE: 20230101
